FAERS Safety Report 7906143-X (Version None)
Quarter: 2011Q4

REPORT INFORMATION
  Report Type: 
  Country: None (occurrence: None)
  Receive Date: 20111027
  Receipt Date: 20110125
  Transmission Date: 20120403
  Serious: Yes (Other)
  Sender: FDA-Public Use
  Company Number: 2010-4488

PATIENT
  Age: 14 Year
  Sex: Female
  Weight: 34 kg

DRUGS (4)
  1. INCRELEX [Suspect]
     Indication: INSULIN-LIKE GROWTH FACTOR DECREASED
     Dosage: SEE IMAGE
     Route: 058
     Dates: start: 20101217, end: 20101222
  2. INCRELEX [Suspect]
     Indication: INSULIN-LIKE GROWTH FACTOR DECREASED
     Dosage: SEE IMAGE
     Route: 058
     Dates: start: 20101223, end: 20101224
  3. INCRELEX [Suspect]
     Indication: INSULIN-LIKE GROWTH FACTOR DECREASED
     Dosage: SEE IMAGE
     Route: 058
     Dates: start: 20101214, end: 20101216
  4. INCRELEX [Suspect]
     Indication: INSULIN-LIKE GROWTH FACTOR DECREASED
     Dosage: SEE IMAGE
     Route: 058
     Dates: start: 20101127, end: 20101209

REACTIONS (13)
  - HEADACHE [None]
  - VOMITING [None]
  - MIGRAINE [None]
  - PAPILLOEDEMA [None]
  - MUSCULOSKELETAL PAIN [None]
  - VISUAL IMPAIRMENT [None]
  - CRYING [None]
  - EMOTIONAL DISORDER [None]
  - NAUSEA [None]
  - HYPOGLYCAEMIA [None]
  - PAIN IN EXTREMITY [None]
  - BENIGN INTRACRANIAL HYPERTENSION [None]
  - OPTIC NEURITIS [None]
